FAERS Safety Report 17567667 (Version 1)
Quarter: 2020Q1

REPORT INFORMATION
  Report Type: Spontaneous
  Country: US (occurrence: US)
  Receive Date: 20200320
  Receipt Date: 20200320
  Transmission Date: 20200409
  Serious: Yes (Hospitalization, Disabling, Other)
  Sender: FDA-Public Use
  Company Number: US-JNJFOC-20200317154

PATIENT
  Age: 50 Year
  Sex: Female

DRUGS (1)
  1. INVOKANA [Suspect]
     Active Substance: CANAGLIFLOZIN
     Indication: PRODUCT USED FOR UNKNOWN INDICATION
     Route: 048

REACTIONS (6)
  - Toe amputation [Unknown]
  - Osteomyelitis chronic [Unknown]
  - Leg amputation [Unknown]
  - Localised infection [Unknown]
  - Gangrene [Unknown]
  - Diabetic foot [Unknown]

NARRATIVE: CASE EVENT DATE: 20130625
